FAERS Safety Report 19958702 (Version 1)
Quarter: 2021Q4

REPORT INFORMATION
  Report Type: Report from Study
  Country: NL (occurrence: NL)
  Receive Date: 20211015
  Receipt Date: 20211015
  Transmission Date: 20220303
  Serious: Yes (Other)
  Sender: FDA-Public Use
  Company Number: NL-PFIZER INC-202101352782

PATIENT
  Age: 13 Year
  Sex: Male

DRUGS (1)
  1. PREGABALIN [Suspect]
     Active Substance: PREGABALIN
     Dosage: 150 MG (DOSE (MGKG-1)/3.0)

REACTIONS (8)
  - Accidental overdose [Unknown]
  - Angina pectoris [Unknown]
  - Somnolence [Unknown]
  - Dizziness [Unknown]
  - Tachycardia [Unknown]
  - Muscle twitching [Unknown]
  - Nausea [Unknown]
  - Abdominal pain upper [Unknown]
